FAERS Safety Report 7777826-X (Version None)
Quarter: 2011Q3

REPORT INFORMATION
  Report Type: 
  Country: None (occurrence: None)
  Receive Date: 20110926
  Receipt Date: 20110828
  Transmission Date: 20111222
  Serious: No
  Sender: FDA-Public Use
  Company Number: US-BIOGENIDEC-2011BI033980

PATIENT
  Sex: Female

DRUGS (2)
  1. TYSABRI [Suspect]
     Indication: MULTIPLE SCLEROSIS
     Route: 042
     Dates: start: 20080805
  2. AVONEX [Concomitant]
     Indication: MULTIPLE SCLEROSIS
     Route: 030

REACTIONS (7)
  - NAUSEA [None]
  - URTICARIA [None]
  - THROAT TIGHTNESS [None]
  - MEMORY IMPAIRMENT [None]
  - HEADACHE [None]
  - STRESS [None]
  - PRURITUS [None]
